FAERS Safety Report 7986628-0 (Version None)
Quarter: 2011Q4

REPORT INFORMATION
  Report Type: 
  Country: None (occurrence: None)
  Receive Date: 20111216
  Receipt Date: 20110811
  Transmission Date: 20120403
  Serious: No
  Sender: FDA-Public Use
  Company Number: US-BRISTOL-MYERS SQUIBB COMPANY-15537343

PATIENT
  Age: 64 Year
  Sex: Female

DRUGS (6)
  1. PREVACID [Concomitant]
  2. RESTASIS [Concomitant]
  3. FOLIC ACID [Concomitant]
  4. PRAVACHOL [Concomitant]
  5. ABILIFY [Suspect]
     Indication: DEPRESSION
     Dates: start: 20101001
  6. CYMBALTA [Suspect]
     Indication: DEPRESSION
     Dosage: OVER A YEAR

REACTIONS (3)
  - VISUAL ACUITY REDUCED [None]
  - VISUAL IMPAIRMENT [None]
  - MEDICATION ERROR [None]
